FAERS Safety Report 9424774 (Version 1)
Quarter: 2013Q3

REPORT INFORMATION
  Report Type: Report from Study
  Country: US (occurrence: US)
  Receive Date: 20130729
  Receipt Date: 20130729
  Transmission Date: 20140515
  Serious: Yes (Hospitalization, Other)
  Sender: FDA-Public Use
  Company Number: US-MYLANLABS-2013S1011174

PATIENT
  Sex: Male

DRUGS (1)
  1. AMNESTEEM CAPSULES [Suspect]

REACTIONS (1)
  - Lung neoplasm [Not Recovered/Not Resolved]
